FAERS Safety Report 8090891-8 (Version None)
Quarter: 2012Q1

REPORT INFORMATION
  Report Type: 
  Country: None (occurrence: None)
  Receive Date: 20120131
  Receipt Date: 20120126
  Transmission Date: 20120608
  Serious: Yes (Hospitalization)
  Sender: FDA-Public Use
  Company Number: NL-AMGEN-NLDSP2012005809

PATIENT
  Age: 44 Year
  Sex: Male
  Weight: 93 kg

DRUGS (9)
  1. PREDNISONE TAB [Suspect]
     Indication: DIFFUSE LARGE B-CELL LYMPHOMA
     Dosage: 100 MG, UNK
     Route: 048
     Dates: start: 20120117
  2. CYCLOPHOSPHAMIDE [Suspect]
     Indication: DIFFUSE LARGE B-CELL LYMPHOMA
     Dosage: 1620 MG, UNK
     Route: 042
     Dates: start: 20120117
  3. VINCRISTINE [Suspect]
     Indication: DIFFUSE LARGE B-CELL LYMPHOMA
     Dosage: 2 MG, UNK
     Route: 042
     Dates: start: 20120112
  4. VALGANCICLOVIR [Concomitant]
     Dosage: 500 MG, UNK
     Route: 048
  5. COTRIM [Concomitant]
     Dosage: 480 MG, UNK
     Route: 048
  6. DOXORUBICIN HCL [Suspect]
     Indication: DIFFUSE LARGE B-CELL LYMPHOMA
     Dosage: 108 MG, UNK
     Route: 042
     Dates: start: 20120117
  7. RITUXIMAB [Suspect]
     Indication: DIFFUSE LARGE B-CELL LYMPHOMA
     Dosage: 800 MG, UNK
     Route: 042
     Dates: start: 20120117
  8. MOVICOLON [Concomitant]
     Indication: CONSTIPATION
     Dosage: UNK MG, UNK
     Route: 048
  9. NEUPOGEN [Suspect]
     Indication: DIFFUSE LARGE B-CELL LYMPHOMA
     Dosage: 6 MG, UNK
     Route: 058
     Dates: start: 20120118

REACTIONS (1)
  - FEBRILE NEUTROPENIA [None]
